FAERS Safety Report 15235012 (Version 1)
Quarter: 2018Q3

REPORT INFORMATION
  Report Type: Report from Study
  Country: US (occurrence: US)
  Receive Date: 20180803
  Receipt Date: 20180803
  Transmission Date: 20181010
  Serious: Yes (Other)
  Sender: FDA-Public Use
  Company Number: US-EMD SERONO-E2B_90053426

PATIENT
  Age: 66 Year
  Sex: Male

DRUGS (1)
  1. REBIF [Suspect]
     Active Substance: INTERFERON BETA-1A
     Indication: MULTIPLE SCLEROSIS
     Route: 058
     Dates: start: 20180612

REACTIONS (5)
  - Nystagmus [Unknown]
  - Body temperature abnormal [Not Recovered/Not Resolved]
  - Depression [Unknown]
  - Optic nerve disorder [Unknown]
  - Cataract [Unknown]

NARRATIVE: CASE EVENT DATE: 201807
